FAERS Safety Report 4890539-7 (Version None)
Quarter: 2006Q1

REPORT INFORMATION
  Report Type: 
  Country: None (occurrence: None)
  Receive Date: 20060123
  Receipt Date: 20060112
  Transmission Date: 20060701
  Serious: Yes (Hospitalization)
  Sender: FDA-Public Use
  Company Number: US200601001984

PATIENT
  Age: 75 Year
  Sex: Female

DRUGS (4)
  1. HUMALOG [Suspect]
     Dosage: SEE IMAGE
  2. HUMULIN N [Suspect]
     Dosage: 18 U, EACH MORNING, UNK
  3. INSULIN [Suspect]
     Dates: start: 19570201
  4. .... [Concomitant]

REACTIONS (7)
  - ARTERIAL OCCLUSIVE DISEASE [None]
  - BLOOD GLUCOSE INCREASED [None]
  - DIFFICULTY IN WALKING [None]
  - DRUG INEFFECTIVE [None]
  - GRAFT COMPLICATION [None]
  - PHARMACEUTICAL PRODUCT COMPLAINT [None]
  - VASCULAR BYPASS GRAFT [None]
